FAERS Safety Report 10655420 (Version 1)
Quarter: 2014Q4

REPORT INFORMATION
  Report Type: Spontaneous
  Country: US (occurrence: US)
  Receive Date: 20141216
  Receipt Date: 20141216
  Transmission Date: 20150529
  Serious: No
  Sender: FDA-Public Use
  Company Number: US-BAYER-2014-184377

PATIENT
  Age: 76 Year
  Sex: Female
  Weight: 105 kg

DRUGS (5)
  1. ALEVE [Suspect]
     Active Substance: NAPROXEN SODIUM
     Indication: BACK PAIN
     Dosage: 4 DF, UNK
     Route: 048
     Dates: start: 20141211, end: 20141211
  2. LOSARTAN [Concomitant]
     Active Substance: LOSARTAN
     Dosage: UNK
  3. INSULIN [Concomitant]
     Active Substance: INSULIN NOS
     Dosage: UNK
  4. ALEVE [Suspect]
     Active Substance: NAPROXEN SODIUM
     Indication: BACK PAIN
     Dosage: UNK
     Route: 048
  5. ALEVE [Suspect]
     Active Substance: NAPROXEN SODIUM
     Indication: ARTHRALGIA
     Dosage: 4 DF, ONCE
     Route: 048
     Dates: start: 20141210, end: 20141210

REACTIONS (5)
  - Extra dose administered [None]
  - Extra dose administered [None]
  - Pollakiuria [Not Recovered/Not Resolved]
  - Dry mouth [Unknown]
  - Drug ineffective [None]

NARRATIVE: CASE EVENT DATE: 20141210
